FAERS Safety Report 17722368 (Version 3)
Quarter: 2020Q2

REPORT INFORMATION
  Report Type: Spontaneous
  Country: US (occurrence: US)
  Receive Date: 20200429
  Receipt Date: 20200622
  Transmission Date: 20200714
  Serious: No
  Sender: FDA-Public Use
  Company Number: US-PFIZER INC-2020161945

PATIENT
  Age: 49 Year
  Sex: Female

DRUGS (1)
  1. XELJANZ [Suspect]
     Active Substance: TOFACITINIB CITRATE
     Indication: RHEUMATOID ARTHRITIS
     Dosage: 5 MG, 2X/DAY
     Route: 048
     Dates: start: 2016

REACTIONS (8)
  - Joint swelling [Unknown]
  - Intentional product misuse [Unknown]
  - Joint stiffness [Unknown]
  - Depressed mood [Unknown]
  - Arthropathy [Unknown]
  - Pain [Unknown]
  - Product dose omission [Unknown]
  - Musculoskeletal stiffness [Unknown]
